FAERS Safety Report 8552834-X (Version None)
Quarter: 2012Q2

REPORT INFORMATION
  Report Type: 
  Country: None (occurrence: None)
  Receive Date: 20120416
  Receipt Date: 20091207
  Transmission Date: 20120825
  Serious: Yes (Other)
  Sender: FDA-Public Use
  Company Number: PHHY2009US53295

PATIENT
  Age: 72 Year
  Sex: Male

DRUGS (1)
  1. EXELON [Suspect]
     Indication: DEMENTIA ALZHEIMER'S TYPE
     Dosage: 9.6 MG, QD, TRANSDERMAL
     Route: 062
     Dates: start: 20091014, end: 20091125

REACTIONS (2)
  - RECTAL HAEMORRHAGE [None]
  - HAEMORRHAGE [None]
